FAERS Safety Report 24549372 (Version 1)
Quarter: 2024Q4

REPORT INFORMATION
  Report Type: Spontaneous
  Country: GB (occurrence: GB)
  Receive Date: 20241025
  Receipt Date: 20241025
  Transmission Date: 20250115
  Serious: Yes (Other)
  Sender: BAYER HEALTHCARE PHARMACEUTICALS INC.
  Company Number: None

PATIENT

DRUGS (1)
  1. MIRENA [Suspect]
     Active Substance: LEVONORGESTREL
     Dosage: 20?G/DAY
     Route: 015
     Dates: start: 202404, end: 202410

REACTIONS (9)
  - Suicidal ideation [Recovering/Resolving]
  - Depression [Recovering/Resolving]
  - Pain [Recovering/Resolving]
  - Drug dechallenge positive [Unknown]
  - Pelvic pain [Recovering/Resolving]
  - Abnormal weight gain [Unknown]
  - Loss of libido [Unknown]
  - Abdominal distension [Unknown]
  - Mood altered [None]
